FAERS Safety Report 6055676-2 (Version None)
Quarter: 2009Q1

REPORT INFORMATION
  Report Type: 
  Country: None (occurrence: None)
  Receive Date: 20090128
  Receipt Date: 20090115
  Transmission Date: 20090719
  Serious: Yes (Other)
  Sender: FDA-Public Use
  Company Number: CA-GENENTECH-274186

PATIENT
  Sex: Male

DRUGS (11)
  1. OMALIZUMAB [Suspect]
     Indication: ASTHMA
  2. MONOPRIL [Concomitant]
     Indication: DRUG USE FOR UNKNOWN INDICATION
  3. SINGULAIR [Concomitant]
     Indication: DRUG USE FOR UNKNOWN INDICATION
  4. CRESTOR [Concomitant]
     Indication: DRUG USE FOR UNKNOWN INDICATION
  5. EZETROL [Concomitant]
     Indication: DRUG USE FOR UNKNOWN INDICATION
  6. HYTRIN [Concomitant]
     Indication: DRUG USE FOR UNKNOWN INDICATION
  7. HYDRODIURIL [Concomitant]
     Indication: DRUG USE FOR UNKNOWN INDICATION
  8. UNIPHYL [Concomitant]
     Indication: DRUG USE FOR UNKNOWN INDICATION
  9. BUDESONIDE [Concomitant]
     Indication: DRUG USE FOR UNKNOWN INDICATION
  10. FORMOTEROL FUMARATE [Concomitant]
     Indication: DRUG USE FOR UNKNOWN INDICATION
  11. SPIRIVA [Concomitant]
     Indication: DRUG USE FOR UNKNOWN INDICATION
     Dosage: UNK

REACTIONS (4)
  - ASTHMA [None]
  - BRONCHOSPASM [None]
  - NASAL POLYPS [None]
  - OTITIS MEDIA [None]
